FAERS Safety Report 26149065 (Version 2)
Quarter: 2025Q4

REPORT INFORMATION
  Report Type: Spontaneous
  Country: JP (occurrence: JP)
  Receive Date: 20251212
  Receipt Date: 20251222
  Transmission Date: 20260118
  Serious: Yes (Other)
  Sender: JOHNSON AND JOHNSON
  Company Number: JP-JNJFOC-20251215919

PATIENT
  Age: 6 Decade
  Sex: Male

DRUGS (3)
  1. PALIPERIDONE PALMITATE [Suspect]
     Active Substance: PALIPERIDONE PALMITATE
     Indication: Schizophrenia
     Dosage: FIRST DOSE
     Route: 030
     Dates: start: 20251128, end: 20251128
  2. PALIPERIDONE PALMITATE [Suspect]
     Active Substance: PALIPERIDONE PALMITATE
  3. PALIPERIDONE PALMITATE [Suspect]
     Active Substance: PALIPERIDONE PALMITATE

REACTIONS (1)
  - Arrhythmia [Recovered/Resolved]

NARRATIVE: CASE EVENT DATE: 20251201
